FAERS Safety Report 5594098-5 (Version None)
Quarter: 2008Q1

REPORT INFORMATION
  Report Type: 
  Country: None (occurrence: None)
  Receive Date: 20080115
  Receipt Date: 20080109
  Transmission Date: 20080703
  Serious: Yes (Hospitalization)
  Sender: FDA-Public Use
  Company Number: 2008SP000671

PATIENT
  Age: 47 Year
  Sex: Female

DRUGS (2)
  1. PEG-INTRON [Suspect]
     Indication: HEPATITIS C
     Dosage: SC
     Route: 058
     Dates: start: 20070813
  2. RIBAVIRIN [Suspect]
     Indication: HEPATITIS C
     Dosage: PO
     Route: 048
     Dates: start: 20070813

REACTIONS (10)
  - ANAEMIA [None]
  - ANXIETY [None]
  - BLOOD POTASSIUM DECREASED [None]
  - DRY MOUTH [None]
  - DYSPNOEA [None]
  - MALAISE [None]
  - MUSCLE TIGHTNESS [None]
  - MUSCULOSKELETAL CHEST PAIN [None]
  - PAIN [None]
  - PHARYNGOLARYNGEAL PAIN [None]
